FAERS Safety Report 9524402 (Version 1)
Quarter: 2013Q3

REPORT INFORMATION
  Report Type: Spontaneous
  Country: GB (occurrence: None)
  Receive Date: 20130912
  Receipt Date: 20130912
  Transmission Date: 20140515
  Serious: Yes (Disabling, Other)
  Sender: FDA-Public Use
  Company Number: AUR-APL-2013-07430

PATIENT
  Age: 68 Year
  Sex: Male

DRUGS (1)
  1. ONDANSETRON (ONDANSETRON) [Suspect]
     Indication: PRODUCT USED FOR UNKNOWN INDICATION
     Dates: start: 20130821

REACTIONS (1)
  - Erythema [None]
